FAERS Safety Report 12410146 (Version 1)
Quarter: 2016Q2

REPORT INFORMATION
  Report Type: Spontaneous
  Country: US (occurrence: None)
  Receive Date: 20160526
  Receipt Date: 20160526
  Transmission Date: 20160815
  Serious: Yes (Hospitalization, Other)
  Sender: FDA-Public Use
  Company Number: None

PATIENT
  Age: 85 Year
  Sex: Female

DRUGS (1)
  1. TOLTERODINE TART [Suspect]
     Active Substance: TOLTERODINE TARTRATE
     Indication: HYPERTONIC BLADDER
     Route: 048
     Dates: start: 20160419

REACTIONS (5)
  - Arrhythmia [None]
  - Escherichia urinary tract infection [None]
  - Urinary retention [None]
  - Dementia [None]
  - Hallucination [None]

NARRATIVE: CASE EVENT DATE: 20160506
